FAERS Safety Report 5117048-4 (Version None)
Quarter: 2006Q3

REPORT INFORMATION
  Report Type: 
  Country: None (occurrence: None)
  Receive Date: 20060925
  Receipt Date: 20060905
  Transmission Date: 20061208
  Serious: Yes (Life-Threatening, Hospitalization)
  Sender: FDA-Public Use
  Company Number: 2006112894

PATIENT
  Age: 84 Year
  Sex: Male

DRUGS (5)
  1. LIPITOR [Suspect]
     Indication: HYPERLIPIDAEMIA
     Dosage: 40 MG (1 IN 1 D), ORAL
     Route: 048
     Dates: start: 20030119, end: 20060829
  2. ADALAT [Suspect]
     Indication: HYPERTENSION
     Dosage: 150 MG (1 IN 1 D), ORAL
     Route: 048
     Dates: start: 20050724, end: 20060829
  3. URINORM (BENZBROMARONE) [Suspect]
     Indication: HYPERURICAEMIA
     Dosage: 200 MG (1 IN 1 D), ORAL
     Route: 048
     Dates: start: 20010621, end: 20060829
  4. TAMSULOSIN HYDROCHLORIDE (TAMSULOSIN HYDROCHLORIDE) [Suspect]
     Indication: BENIGN PROSTATIC HYPERPLASIA
     Dosage: 0.8 MG (1 IN 1 D), ORAL
     Route: 048
     Dates: start: 20020821, end: 20020829
  5. BUFFERIN (ACETYLSALIYCYCLIC ACID, ALUMINIUM GLYCINAT, MAGNESIUM CARBON [Suspect]
     Indication: CEREBROVASCULAR DISORDER
     Dosage: 324 MG (324 MG, 4 IN 1 D), ORAL
     Route: 048
     Dates: start: 20050827, end: 20060829

REACTIONS (13)
  - AGNOSIA [None]
  - AMNESIA [None]
  - ANAEMIA [None]
  - BENIGN PROSTATIC HYPERPLASIA [None]
  - BLOOD PRESSURE DIASTOLIC DECREASED [None]
  - CEREBROVASCULAR DISORDER [None]
  - COGNITIVE DISORDER [None]
  - DUODENAL ULCER [None]
  - HAEMORRHAGE [None]
  - HYPERLIPIDAEMIA [None]
  - HYPERTENSION [None]
  - INCORRECT DOSE ADMINISTERED [None]
  - MELAENA [None]
